FAERS Safety Report 11987300 (Version 1)
Quarter: 2016Q1

REPORT INFORMATION
  Report Type: Report from Study
  Country: US (occurrence: US)
  Receive Date: 20160202
  Receipt Date: 20160202
  Transmission Date: 20160526
  Serious: No
  Sender: FDA-Public Use
  Company Number: US-ABBVIE-15K-163-1337440-00

PATIENT
  Sex: Male
  Weight: 79.45 kg

DRUGS (2)
  1. HUMIRA [Suspect]
     Active Substance: ADALIMUMAB
     Indication: PSORIATIC ARTHROPATHY
     Route: 065
     Dates: start: 2007, end: 2014
  2. HUMIRA [Suspect]
     Active Substance: ADALIMUMAB
     Route: 065
     Dates: start: 20150109

REACTIONS (4)
  - Laceration [Recovered/Resolved]
  - Skin mass [Recovered/Resolved]
  - Psoriatic arthropathy [Not Recovered/Not Resolved]
  - Mycobacterium marinum infection [Recovered/Resolved]

NARRATIVE: CASE EVENT DATE: 2014
